FAERS Safety Report 11734406 (Version 1)
Quarter: 2015Q4

REPORT INFORMATION
  Report Type: Report from Study
  Country: US (occurrence: US)
  Receive Date: 20151113
  Receipt Date: 20151113
  Transmission Date: 20160304
  Serious: Yes (Other)
  Sender: FDA-Public Use
  Company Number: US-BIOGENIDEC-2015BI150211

PATIENT
  Age: 46 Year
  Sex: Female

DRUGS (1)
  1. PLEGRIDY [Suspect]
     Active Substance: PEGINTERFERON BETA-1A
     Indication: MULTIPLE SCLEROSIS
     Route: 058
     Dates: start: 20150917

REACTIONS (10)
  - Epilepsy [Recovered/Resolved]
  - Frustration [Unknown]
  - Erythema [Not Recovered/Not Resolved]
  - Influenza like illness [Unknown]
  - Asthenia [Unknown]
  - Malaise [Unknown]
  - Memory impairment [Unknown]
  - Sensory disturbance [Unknown]
  - Lack of injection site rotation [Unknown]
  - Abnormal behaviour [Unknown]

NARRATIVE: CASE EVENT DATE: 2015
